FAERS Safety Report 7773798-2 (Version None)
Quarter: 2011Q3

REPORT INFORMATION
  Report Type: 
  Country: None (occurrence: None)
  Receive Date: 20110923
  Receipt Date: 20110913
  Transmission Date: 20111222
  Serious: Yes (Other)
  Sender: FDA-Public Use
  Company Number: ES-JNJFOC-20110905948

PATIENT
  Sex: Male
  Weight: 78 kg

DRUGS (1)
  1. STELARA [Suspect]
     Indication: PSORIASIS
     Route: 058
     Dates: start: 20091203, end: 20110901

REACTIONS (6)
  - URTICARIA [None]
  - MYOSITIS [None]
  - CHORIORETINOPATHY [None]
  - MYALGIA [None]
  - FATIGUE [None]
  - VITREOUS DETACHMENT [None]
